FAERS Safety Report 8870201 (Version 3)
Quarter: 2012Q4

REPORT INFORMATION
  Report Type: 
  Country: US (occurrence: US)
  Receive Date: 20121026
  Receipt Date: 20121227
  Transmission Date: 20130627
  Serious: Yes (Other)
  Sender: FDA-Public Use
  Company Number: US-ASTRAZENECA-2012SE79958

PATIENT
  Age: 95 Year
  Sex: Female
  Weight: 59.4 kg

DRUGS (1)
  1. NEXIUM [Suspect]
     Route: 048

REACTIONS (3)
  - Herpes zoster [Unknown]
  - Visual acuity reduced [Unknown]
  - Hearing impaired [Unknown]
